FAERS Safety Report 8823022 (Version 1)
Quarter: 2012Q4

REPORT INFORMATION
  Report Type: 
  Country: US (occurrence: US)
  Receive Date: 20121003
  Receipt Date: 20121003
  Transmission Date: 20130627
  Serious: No
  Sender: FDA-Public Use
  Company Number: US-009507513-2012SP027466

PATIENT
  Sex: Female
  Weight: 61.22 kg

DRUGS (3)
  1. MIRALAX [Suspect]
     Indication: CONSTIPATION
     Dosage: UNK UNK, BID
     Route: 048
     Dates: start: 201203
  2. MIRALAX [Suspect]
     Indication: MEDICAL OBSERVATION
  3. OXYCODONE [Concomitant]
     Indication: PAIN
     Dosage: UNK, Unknown

REACTIONS (1)
  - Overdose [Unknown]
